FAERS Safety Report 8172404-5 (Version None)
Quarter: 2012Q1

REPORT INFORMATION
  Report Type: 
  Country: None (occurrence: None)
  Receive Date: 20120224
  Receipt Date: 20120224
  Transmission Date: 20120608
  Serious: Yes (Other)
  Sender: FDA-Public Use
  Company Number: None

PATIENT
  Age: 16 Year
  Sex: Female

DRUGS (3)
  1. ZONEGRAN [Concomitant]
  2. DIVALPROEX SODIUM [Suspect]
     Indication: CONVULSION
     Dosage: 500 MG ^O^ TWO BID
     Dates: start: 20110801
  3. ZARONTIN [Concomitant]

REACTIONS (4)
  - PRODUCT SUBSTITUTION ISSUE [None]
  - RASH [None]
  - DYSPNOEA [None]
  - HEART RATE INCREASED [None]
